FAERS Safety Report 7427536-3 (Version None)
Quarter: 2011Q2

REPORT INFORMATION
  Report Type: 
  Country: None (occurrence: None)
  Receive Date: 20110420
  Receipt Date: 20110413
  Transmission Date: 20111010
  Serious: Yes (Hospitalization)
  Sender: FDA-Public Use
  Company Number: JP-MERCK-1102USA02077

PATIENT

DRUGS (2)
  1. AMARYL [Concomitant]
     Indication: BLOOD GLUCOSE ABNORMAL
     Route: 048
  2. JANUVIA [Suspect]
     Indication: BLOOD GLUCOSE ABNORMAL
     Route: 048
     Dates: start: 20110121

REACTIONS (3)
  - RENAL FAILURE ACUTE [None]
  - GASTROENTERITIS [None]
  - NOROVIRUS TEST POSITIVE [None]
